FAERS Safety Report 14313227 (Version 1)
Quarter: 2017Q4

REPORT INFORMATION
  Report Type: Spontaneous
  Country: US (occurrence: US)
  Receive Date: 20171220
  Receipt Date: 20171220
  Transmission Date: 20180321
  Serious: Yes (Death, Hospitalization)
  Sender: FDA-Public Use
  Company Number: None

PATIENT
  Sex: Male
  Weight: 60.3 kg

DRUGS (18)
  1. IPRATROPIUM BROMIDE. [Concomitant]
     Active Substance: IPRATROPIUM BROMIDE
  2. DESAMETHASONE [Concomitant]
     Active Substance: DEXAMETHASONE
  3. SUCRAFATE FLEXERILA [Concomitant]
  4. ESTER C [Concomitant]
  5. LISINOPRIL. [Concomitant]
     Active Substance: LISINOPRIL
  6. CENTRUM SILVER [Concomitant]
     Active Substance: MINERALS\VITAMINS
  7. HERCEPTIN [Suspect]
     Active Substance: TRASTUZUMAB
     Indication: OESOPHAGEAL CARCINOMA
     Route: 042
     Dates: start: 20170701, end: 20170815
  8. CETIRIZINE [Concomitant]
     Active Substance: CETIRIZINE HYDROCHLORIDE
  9. BYSTOLIC [Concomitant]
     Active Substance: NEBIVOLOL HYDROCHLORIDE
  10. OXYCODONE [Concomitant]
     Active Substance: OXYCODONE
  11. TAMAZEPAN [Concomitant]
  12. FISH OIL [Concomitant]
     Active Substance: FISH OIL
  13. TUMERIC [Concomitant]
     Active Substance: HERBALS\TURMERIC
  14. ANTACIDS [Concomitant]
     Active Substance: UNSPECIFIED INGREDIENT
  15. BUSPIRONE [Concomitant]
     Active Substance: BUSPIRONE HYDROCHLORIDE
  16. ALBUTERAL [Concomitant]
     Active Substance: ALBUTEROL
  17. RANITIDINE. [Concomitant]
     Active Substance: RANITIDINE
  18. LYRICA [Concomitant]
     Active Substance: PREGABALIN

REACTIONS (1)
  - Cardiac function test abnormal [None]

NARRATIVE: CASE EVENT DATE: 20170817
